FAERS Safety Report 5283270-X (Version None)
Quarter: 2007Q1

REPORT INFORMATION
  Report Type: 
  Country: None (occurrence: None)
  Receive Date: 20070329
  Receipt Date: 20070329
  Transmission Date: 20070707
  Serious: Yes (Hospitalization)
  Sender: FDA-Public Use
  Company Number: None

PATIENT
  Age: 51 Year
  Sex: Male
  Weight: 145.8 kg

DRUGS (8)
  1. IMATINIB MESYLATE [Suspect]
     Indication: METASTATIC RENAL CELL CARCINOMA
     Dosage: 600MG EVERY DAY PO
     Route: 048
     Dates: start: 20061128, end: 20070327
  2. RAD001 2.5MG NOVARTIS [Suspect]
     Indication: METASTATIC RENAL CELL CARCINOMA
     Dosage: 2.5MG EVERY OTHER DAY PO
     Route: 048
     Dates: start: 20061128, end: 20070327
  3. COREG [Concomitant]
  4. LISINOPRIL [Concomitant]
  5. INSPIRA [Concomitant]
  6. ASPIRIN [Concomitant]
  7. PRILOSEC [Concomitant]
  8. LASIX [Concomitant]

REACTIONS (1)
  - CARDIAC FAILURE [None]
